FAERS Safety Report 10724071 (Version 1)
Quarter: 2015Q1

REPORT INFORMATION
  Report Type: Spontaneous
  Country: US (occurrence: None)
  Receive Date: 20150116
  Receipt Date: 20150116
  Transmission Date: 20150721
  Serious: Yes (Life-Threatening, Other)
  Sender: FDA-Public Use
  Company Number: None

PATIENT
  Age: 49 Year
  Sex: Male
  Weight: 79.38 kg

DRUGS (1)
  1. RISPERDAL [Suspect]
     Active Substance: RISPERIDONE
     Indication: SCHIZOAFFECTIVE DISORDER
     Dosage: 1/2 MILLIGRAM ONCE DAILY
     Route: 048

REACTIONS (8)
  - Diabetes mellitus [None]
  - Therapy cessation [None]
  - Metabolic syndrome [None]
  - Weight decreased [None]
  - Dermatitis contact [None]
  - Arthropod bite [None]
  - Immune system disorder [None]
  - Weight increased [None]
